FAERS Safety Report 4954214-2 (Version None)
Quarter: 2006Q1

REPORT INFORMATION
  Report Type: 
  Country: None (occurrence: None)
  Receive Date: 20060327
  Receipt Date: 20051025
  Transmission Date: 20060701
  Serious: Yes (Hospitalization, Disabling)
  Sender: FDA-Public Use
  Company Number: US-MERCK-0510USA09223

PATIENT
  Age: 51 Year
  Sex: Male
  Weight: 70 kg

DRUGS (6)
  1. VIOXX [Suspect]
     Indication: NECK PAIN
     Route: 048
     Dates: start: 19990101, end: 20010301
  2. VASOTEC RPD [Concomitant]
     Route: 048
  3. LIPITOR [Concomitant]
     Route: 048
  4. NPH INSULIN [Concomitant]
     Route: 051
  5. NPH INSULIN [Concomitant]
     Route: 051
  6. REGULAR INSULIN [Concomitant]
     Route: 051

REACTIONS (10)
  - ACUTE SINUSITIS [None]
  - BLINDNESS [None]
  - CARDIOVASCULAR DISORDER [None]
  - CEREBROVASCULAR ACCIDENT [None]
  - HYPERTENSION [None]
  - INJURY [None]
  - ISCHAEMIC STROKE [None]
  - LUNG NEOPLASM [None]
  - PULMONARY EMBOLISM [None]
  - SYNCOPE [None]
